FAERS Safety Report 17296899 (Version 1)
Quarter: 2020Q1

REPORT INFORMATION
  Report Type: Spontaneous
  Country: US (occurrence: US)
  Receive Date: 20200122
  Receipt Date: 20200122
  Transmission Date: 20200409
  Serious: Yes (Other)
  Sender: FDA-Public Use
  Company Number: US-CELLTRION INC.-2019US021889

PATIENT

DRUGS (2)
  1. INFLECTRA [Suspect]
     Active Substance: INFLIXIMAB-DYYB
     Indication: CROHN^S DISEASE
     Dosage: 10 MG/KG EVERY 6 WEEKS
     Route: 065
     Dates: start: 201805
  2. INFLECTRA [Suspect]
     Active Substance: INFLIXIMAB-DYYB
     Dosage: 10MG/KG INFUSION INTRAVENOUSLY EVERY 6 WEEKS
     Route: 042
     Dates: start: 20180305

REACTIONS (6)
  - Product dose omission [Unknown]
  - Weight increased [Unknown]
  - Malaise [Unknown]
  - Overdose [Unknown]
  - Product use issue [Unknown]
  - Drug ineffective [Unknown]
